FAERS Safety Report 19090129 (Version 2)
Quarter: 2021Q2

REPORT INFORMATION
  Report Type: Spontaneous
  Country: NL (occurrence: NL)
  Receive Date: 20210404
  Receipt Date: 20210423
  Transmission Date: 20210717
  Serious: Yes (Death, Life-Threatening)
  Sender: FDA-Public Use
  Company Number: NL-TEVA-2021-NL-1896859

PATIENT
  Age: 83 Year
  Sex: Female
  Weight: 50 kg

DRUGS (2)
  1. METHOTREXAAT TABLET  2,5MG / BRAND NAME NOT SPECIFIED [Suspect]
     Active Substance: METHOTREXATE SODIUM
     Indication: RHEUMATOID ARTHRITIS
     Dosage: 2.5 MILLIGRAM DAILY;
     Dates: start: 20161230, end: 20210301
  2. METHOTREXAAT TABLET  2,5MG / BRAND NAME NOT SPECIFIED [Suspect]
     Active Substance: METHOTREXATE SODIUM
     Indication: PSORIASIS

REACTIONS (5)
  - Depressed level of consciousness [Fatal]
  - Pyrexia [Fatal]
  - Heart rate increased [Fatal]
  - Malaise [Fatal]
  - Fatigue [Fatal]

NARRATIVE: CASE EVENT DATE: 20210225
